FAERS Safety Report 8047342-9 (Version None)
Quarter: 2012Q1

REPORT INFORMATION
  Report Type: 
  Country: None (occurrence: None)
  Receive Date: 20120116
  Receipt Date: 20120105
  Transmission Date: 20120608
  Serious: Yes (Other)
  Sender: FDA-Public Use
  Company Number: US-PERRIGO-11US003339

PATIENT
  Sex: Male
  Weight: 10.884 kg

DRUGS (1)
  1. NICOTINE POLACRILEX [Suspect]
     Indication: ACCIDENTAL DRUG INTAKE BY CHILD
     Dosage: 4 MG-6MG, SINGLE
     Route: 048
     Dates: start: 20110405, end: 20110405

REACTIONS (8)
  - ARRHYTHMIA [None]
  - ACCIDENTAL OVERDOSE [None]
  - FATIGUE [None]
  - VOMITING [None]
  - PALPITATIONS [None]
  - LETHARGY [None]
  - DIZZINESS [None]
  - DROOLING [None]
